FAERS Safety Report 24091247 (Version 1)
Quarter: 2024Q3

REPORT INFORMATION
  Report Type: Spontaneous
  Country: US (occurrence: US)
  Receive Date: 20240715
  Receipt Date: 20240715
  Transmission Date: 20241017
  Serious: No
  Sender: JOHNSON AND JOHNSON
  Company Number: US-JNJFOC-20240721320

PATIENT
  Age: 9 Decade
  Sex: Female

DRUGS (2)
  1. TYLENOL 8 HR ARTHRITIS PAIN [Suspect]
     Active Substance: ACETAMINOPHEN
     Indication: Arthralgia
     Dosage: 4 CAPS OF THE TWO KINDS EVERY DAY (RAPID RELEASE AND THE OTHER FOR ARTHRITIS PAIN).
     Route: 065
     Dates: start: 2023
  2. TYLENOL EXTRA STRENGTH [Concomitant]
     Active Substance: ACETAMINOPHEN
     Indication: Neuralgia
     Dosage: 4 CAPS OF THE TWO KINDS EVERY DAY (RAPID RELEASE AND THE OTHER FOR ARTHRITIS PAIN).
     Route: 065
     Dates: start: 2023

REACTIONS (2)
  - Product administration error [Unknown]
  - Inappropriate schedule of product administration [Unknown]

NARRATIVE: CASE EVENT DATE: 20230101
